FAERS Safety Report 5735777-6 (Version None)
Quarter: 2008Q2

REPORT INFORMATION
  Report Type: 
  Country: None (occurrence: None)
  Receive Date: 20080513
  Receipt Date: 20080502
  Transmission Date: 20081010
  Serious: Yes (Other)
  Sender: FDA-Public Use
  Company Number: US-JNJFOC-20080501386

PATIENT
  Sex: Female
  Weight: 115.21 kg

DRUGS (9)
  1. MOTRIN IB [Suspect]
     Route: 048
  2. MOTRIN IB [Suspect]
     Indication: PAIN
     Dosage: 200 MG TO 600 MG EVERY DAY
     Route: 048
  3. AVALIDE [Concomitant]
     Indication: HYPERTENSION
     Route: 048
  4. NATURAL THYROID MEDICATION [Concomitant]
     Indication: HYPOTHYROIDISM
     Route: 048
  5. IRON [Concomitant]
     Indication: ANAEMIA
     Route: 048
  6. FISH OIL [Concomitant]
     Route: 048
  7. VITAMIN D [Concomitant]
     Route: 048
  8. SULFA [Concomitant]
     Route: 048
  9. VITAMIN E [Concomitant]
     Route: 048

REACTIONS (8)
  - BODY HEIGHT DECREASED [None]
  - DRUG INEFFECTIVE [None]
  - HEADACHE [None]
  - INTESTINAL HAEMORRHAGE [None]
  - KNEE ARTHROPLASTY [None]
  - OSTEOARTHRITIS [None]
  - ULCER [None]
  - WEIGHT INCREASED [None]
